FAERS Safety Report 5568087-0 (Version None)
Quarter: 2007Q4

REPORT INFORMATION
  Report Type: 
  Country: None (occurrence: None)
  Receive Date: 20071220
  Receipt Date: 20050927
  Transmission Date: 20080405
  Serious: Yes (Other)
  Sender: FDA-Public Use
  Company Number: IT-JNJFOC-20071200157

PATIENT
  Age: 36 Year
  Sex: Female
  Weight: 68 kg

DRUGS (2)
  1. HALOPERIDOL [Suspect]
     Indication: BIPOLAR I DISORDER
     Route: 048
  2. LIPID LOWERING THERAPY [Concomitant]
     Indication: HYPERLIPIDAEMIA
     Route: 065

REACTIONS (1)
  - WEIGHT INCREASED [None]
